FAERS Safety Report 14353968 (Version 3)
Quarter: 2018Q1

REPORT INFORMATION
  Report Type: Spontaneous
  Country: US (occurrence: US)
  Receive Date: 20180105
  Receipt Date: 20180308
  Transmission Date: 20180509
  Serious: No
  Sender: FDA-Public Use
  Company Number: US-TAKEDA-2018MPI000020

PATIENT
  Sex: Male
  Weight: 76 kg

DRUGS (1)
  1. NINLARO [Suspect]
     Active Substance: IXAZOMIB CITRATE
     Indication: PLASMA CELL MYELOMA
     Dosage: 4 MG, UNK
     Route: 048
     Dates: start: 20160212, end: 20171207

REACTIONS (4)
  - Diarrhoea [Unknown]
  - Cough [Unknown]
  - White blood cell count decreased [Unknown]
  - Bronchitis [Unknown]
